FAERS Safety Report 25529744 (Version 1)
Quarter: 2025Q3

REPORT INFORMATION
  Report Type: Spontaneous
  Country: US (occurrence: None)
  Receive Date: 20250708
  Receipt Date: 20250708
  Transmission Date: 20251020
  Serious: Yes (Hospitalization)
  Sender: FDA-CTU
  Company Number: None

PATIENT
  Age: 54 Year
  Sex: Female

DRUGS (1)
  1. PACLITAXEL [Suspect]
     Active Substance: PACLITAXEL
     Indication: Endometrial adenocarcinoma
     Route: 042
     Dates: start: 20250630, end: 20250630

REACTIONS (9)
  - Infusion related reaction [None]
  - Erythema [None]
  - Dyspnoea [None]
  - Chest discomfort [None]
  - Burning sensation [None]
  - Nausea [None]
  - Stridor [None]
  - Pupil fixed [None]
  - Unresponsive to stimuli [None]

NARRATIVE: CASE EVENT DATE: 20250630
